FAERS Safety Report 7156939-X (Version None)
Quarter: 2010Q4

REPORT INFORMATION
  Report Type: 
  Country: None (occurrence: None)
  Receive Date: 20101214
  Receipt Date: 20101209
  Transmission Date: 20110411
  Serious: Yes (Death)
  Sender: FDA-Public Use
  Company Number: ES-ASTRAZENECA-2010SE54622

PATIENT
  Age: 27203 Day
  Sex: Male
  Weight: 67 kg

DRUGS (14)
  1. SEROQUEL [Suspect]
     Indication: DEMENTIA
     Route: 048
     Dates: start: 20080517, end: 20080602
  2. SEROQUEL [Suspect]
     Indication: PSYCHOMOTOR HYPERACTIVITY
     Route: 048
     Dates: start: 20080517, end: 20080602
  3. SEROQUEL [Suspect]
     Indication: ABNORMAL BEHAVIOUR
     Route: 048
     Dates: start: 20080517, end: 20080602
  4. AXURA [Concomitant]
     Indication: DEMENTIA ALZHEIMER'S TYPE
     Route: 048
     Dates: start: 20050526, end: 20080602
  5. EXELON [Concomitant]
     Indication: DEMENTIA ALZHEIMER'S TYPE
     Route: 048
     Dates: start: 20050516, end: 20080602
  6. COROPRES [Concomitant]
     Indication: CARDIAC DISORDER
     Route: 048
     Dates: start: 20050516, end: 20080602
  7. PLAVIX [Concomitant]
     Indication: CARDIAC DISORDER
     Route: 048
     Dates: start: 20050516, end: 20080602
  8. MEMANTINE HCL [Concomitant]
  9. OMEPRAZOLE [Concomitant]
  10. NITRODERM [Concomitant]
  11. DUPHALAC [Concomitant]
  12. BESITRAN [Concomitant]
  13. LESCOL [Concomitant]
  14. CAFINITRINA [Concomitant]
     Dosage: AS REQUIRED

REACTIONS (4)
  - DEHYDRATION [None]
  - INTENTIONAL DRUG MISUSE [None]
  - PNEUMONIA [None]
  - RHABDOMYOLYSIS [None]
